FAERS Safety Report 24576541 (Version 1)
Quarter: 2024Q4

REPORT INFORMATION
  Report Type: Spontaneous
  Country: CH (occurrence: CH)
  Receive Date: 20241104
  Receipt Date: 20241104
  Transmission Date: 20250114
  Serious: Yes (Hospitalization, Other)
  Sender: TEVA
  Company Number: None

PATIENT
  Age: 62 Year
  Sex: Female
  Weight: 90.4 kg

DRUGS (8)
  1. METFORMIN [Suspect]
     Active Substance: METFORMIN HYDROCHLORIDE
     Indication: Metabolic syndrome
     Dosage: METFORMIN-MEPHA 2X DAILY 1000MG
     Route: 048
     Dates: end: 20240523
  2. TOPIRAMAT MEPHA [Concomitant]
     Indication: Product used for unknown indication
     Route: 048
  3. PALIPERIDONE PALMITATE [Concomitant]
     Active Substance: PALIPERIDONE PALMITATE
     Indication: Product used for unknown indication
     Dosage: 1 PIECE LAST ON MARCH 7, 2024
     Route: 030
     Dates: end: 20240307
  4. CYANOCOBALAMIN [Concomitant]
     Active Substance: CYANOCOBALAMIN
     Indication: Product used for unknown indication
     Dosage: 1 TABLET EVERY 3 DAYS
     Route: 048
  5. ATORVASTATIN [Concomitant]
     Active Substance: ATORVASTATIN
     Indication: Product used for unknown indication
     Route: 048
  6. QUETIPIN [Concomitant]
     Indication: Product used for unknown indication
     Dosage: 0-0-0-1
     Route: 048
  7. ELTROXIN LF [Concomitant]
     Indication: Product used for unknown indication
     Dosage: 1X DAILY 0.05 MG
     Route: 048
  8. Imazol [Concomitant]
     Indication: Product used for unknown indication
     Dosage: 2X DAILY
     Route: 061

REACTIONS (1)
  - Lactic acidosis [Recovering/Resolving]

NARRATIVE: CASE EVENT DATE: 20240523
